FAERS Safety Report 16946185 (Version 1)
Quarter: 2019Q4

REPORT INFORMATION
  Report Type: Spontaneous
  Country: US (occurrence: US)
  Receive Date: 20190830
  Receipt Date: 20190830
  Transmission Date: 20200122
  Serious: No
  Sender: FDA-Public Use
  Company Number: None

PATIENT
  Age: 53 Year
  Sex: Female

DRUGS (1)
  1. TALTZ [Suspect]
     Active Substance: IXEKIZUMAB
     Dosage: ?          OTHER DOSE:80MG Q 4 WEEKS;OTHER FREQUENCY:OTHER;?
     Route: 058
     Dates: start: 201808

REACTIONS (5)
  - Upper respiratory tract infection [None]
  - Skin discolouration [None]
  - Therapy cessation [None]
  - Insurance issue [None]
  - Fungal skin infection [None]

NARRATIVE: CASE EVENT DATE: 20190801
